FAERS Safety Report 10539192 (Version 1)
Quarter: 2014Q4

REPORT INFORMATION
  Report Type: Report from Study
  Country: AR (occurrence: AR)
  Receive Date: 20141023
  Receipt Date: 20141023
  Transmission Date: 20150529
  Serious: Yes (Other)
  Sender: FDA-Public Use
  Company Number: PHHY2014AR132269

PATIENT
  Sex: Female

DRUGS (3)
  1. AFINITOR [Suspect]
     Active Substance: EVEROLIMUS
     Indication: BREAST CANCER
     Dosage: 10 MG, QD
     Route: 048
     Dates: start: 20140501, end: 20140525
  2. AFINITOR [Suspect]
     Active Substance: EVEROLIMUS
     Dosage: 0.5 DF, QD
     Route: 048
     Dates: start: 201409
  3. AFINITOR [Suspect]
     Active Substance: EVEROLIMUS
     Dosage: 0.25 DF, QD
     Route: 048
     Dates: start: 20140814, end: 201409

REACTIONS (10)
  - Throat irritation [Recovering/Resolving]
  - Pain [Recovering/Resolving]
  - Metastases to bone [Recovering/Resolving]
  - Cough [Recovering/Resolving]
  - Limb discomfort [Recovering/Resolving]
  - Increased upper airway secretion [Recovering/Resolving]
  - Pain in extremity [Recovered/Resolved]
  - Haemoptysis [Recovering/Resolving]
  - Dysphonia [Recovering/Resolving]
  - Epistaxis [Recovered/Resolved]
